FAERS Safety Report 8904572 (Version 2)
Quarter: 2012Q4

REPORT INFORMATION
  Report Type: 
  Country: JP (occurrence: JP)
  Receive Date: 20121109
  Receipt Date: 20121228
  Transmission Date: 20130627
  Serious: Yes (Hospitalization)
  Sender: FDA-Public Use
  Company Number: JP-009507513-1211JPN002129

PATIENT
  Age: 49 Year
  Sex: Male
  Weight: 68 kg

DRUGS (7)
  1. PEGINTRON [Suspect]
     Indication: CHRONIC HEPATITIS C
     Dosage: 1.5 microgram per kilogram per week, daily dose unknown
     Route: 058
     Dates: start: 20120903, end: 20121029
  2. REBETOL [Suspect]
     Indication: CHRONIC HEPATITIS C
     Dosage: 800 mg, qd; Cumulative dose: 1600mg
     Route: 048
     Dates: start: 20120903, end: 20120910
  3. REBETOL [Suspect]
     Dosage: 600 mg, qd; Cumulative dose: 1600mg
     Route: 048
     Dates: start: 20120911, end: 20120930
  4. REBETOL [Suspect]
     Dosage: ; 400 mg, qd; Cumulative dose: 1600mg
     Route: 048
     Dates: start: 20121001, end: 20121021
  5. REBETOL [Suspect]
     Dosage: 200 mg, UNK; Cumulative dose: 1600mg
     Route: 048
     Dates: start: 20121022, end: 20121029
  6. TELAVIC [Suspect]
     Indication: CHRONIC HEPATITIS C
     Dosage: 2250 mg, qd; Cumulative dose: 4500mg
     Route: 048
     Dates: start: 20120903, end: 20120923
  7. TELAVIC [Suspect]
     Dosage: 1500 mg, qd; Cumulative dose: 4500mg
     Route: 048
     Dates: start: 20120924, end: 20121029

REACTIONS (2)
  - Nausea [Not Recovered/Not Resolved]
  - Malaise [Not Recovered/Not Resolved]
